FAERS Safety Report 4672459-6 (Version None)
Quarter: 2005Q2

REPORT INFORMATION
  Report Type: 
  Country: None (occurrence: None)
  Receive Date: 20050523
  Receipt Date: 20050505
  Transmission Date: 20051028
  Serious: Yes (Life-Threatening, Hospitalization)
  Sender: FDA-Public Use
  Company Number: DSA_26426_2005

PATIENT
  Age: 44 Year
  Sex: Female

DRUGS (2)
  1. DICLOFENAC [Suspect]
     Indication: BACK PAIN
     Dosage: DF
  2. PREDNISONE TAB [Concomitant]

REACTIONS (14)
  - ANGIOIMMUNOBLASTIC T-CELL LYMPHOMA [None]
  - BLOOD CREATINE INCREASED [None]
  - BLOOD IMMUNOGLOBULIN E INCREASED [None]
  - CREPITATIONS [None]
  - DRUG RASH WITH EOSINOPHILIA AND SYSTEMIC SYMPTOMS [None]
  - FACE OEDEMA [None]
  - GAMMOPATHY [None]
  - GENERAL PHYSICAL HEALTH DETERIORATION [None]
  - HEPATOMEGALY [None]
  - LUNG INFILTRATION [None]
  - LYMPHADENOPATHY [None]
  - LYMPHOCYTE MORPHOLOGY ABNORMAL [None]
  - RESPIRATORY DISTRESS [None]
  - STEM CELL TRANSPLANT [None]
